FAERS Safety Report 13147957 (Version 2)
Quarter: 2017Q1

REPORT INFORMATION
  Report Type: Spontaneous
  Country: AT (occurrence: AT)
  Receive Date: 20170125
  Receipt Date: 20170217
  Transmission Date: 20170428
  Serious: Yes (Life-Threatening, Other)
  Sender: FDA-Public Use
  Company Number: AT-ASTRAZENECA-2017SE08235

PATIENT
  Age: 18822 Day
  Sex: Male
  Weight: 74 kg

DRUGS (4)
  1. THROMBO-ASS [Concomitant]
     Dosage: DAILY
     Route: 048
     Dates: start: 20161222
  2. HEPARIN [Concomitant]
     Active Substance: HEPARIN SODIUM
     Indication: PERCUTANEOUS CORONARY INTERVENTION
     Dosage: ONLY DURING INTERVENTION
     Route: 042
     Dates: start: 20161228, end: 20161228
  3. PROTAMINE [Concomitant]
     Active Substance: PROTAMINE
  4. BRILIQUE [Suspect]
     Active Substance: TICAGRELOR
     Indication: CORONARY ARTERY DISEASE
     Route: 048
     Dates: start: 20161223, end: 20161228

REACTIONS (4)
  - Haemorrhage [Unknown]
  - Apparent death [Unknown]
  - Cardiac tamponade [Recovering/Resolving]
  - Cardiogenic shock [Unknown]

NARRATIVE: CASE EVENT DATE: 20161228
